FAERS Safety Report 5815193-9 (Version None)
Quarter: 2008Q3

REPORT INFORMATION
  Report Type: 
  Country: None (occurrence: None)
  Receive Date: 20080718
  Receipt Date: 20080710
  Transmission Date: 20090109
  Serious: Yes (Hospitalization)
  Sender: FDA-Public Use
  Company Number: US-KINGPHARMUSA00001-K200800808

PATIENT

DRUGS (7)
  1. ALTACE [Suspect]
     Dosage: 5 MG, QD
     Route: 048
     Dates: end: 20080327
  2. LASIX [Suspect]
     Route: 048
     Dates: end: 20080327
  3. LASIX [Suspect]
     Route: 048
     Dates: start: 20080401, end: 20080401
  4. DIAMICRON [Concomitant]
     Dosage: 30 MG, UNK
     Route: 048
  5. PLAVIX [Concomitant]
     Dosage: 75 MG, UNK
     Route: 048
  6. BISOPROLOL FUMARATE [Concomitant]
     Dosage: 5 MG, UNK
     Route: 048
  7. ATARAX [Concomitant]
     Dosage: UNK, UNK

REACTIONS (5)
  - OEDEMA [None]
  - PRURITUS [None]
  - PSORIASIS [None]
  - RASH MACULO-PAPULAR [None]
  - SKIN EXFOLIATION [None]
